FAERS Safety Report 5019493-4 (Version None)
Quarter: 2006Q2

REPORT INFORMATION
  Report Type: 
  Country: None (occurrence: None)
  Receive Date: 20060605
  Receipt Date: 20060605
  Transmission Date: 20061013
  Serious: Yes (Other)
  Sender: FDA-Public Use
  Company Number: None

PATIENT
  Sex: Female
  Weight: 61.1 kg

DRUGS (6)
  1. TACROLIMUS [Suspect]
     Indication: LIVER TRANSPLANT
     Dosage: 1 MG BID PO
     Route: 048
  2. FERROUS SULFATE TAB [Concomitant]
  3. PROPRANOLOL [Concomitant]
  4. OMEPRAZOLE [Concomitant]
  5. TYLENOL (CAPLET) [Concomitant]
  6. NORVASC [Concomitant]

REACTIONS (5)
  - AMMONIA INCREASED [None]
  - CONVULSION [None]
  - HYPERGLYCAEMIA [None]
  - HYPONATRAEMIA [None]
  - LOSS OF CONSCIOUSNESS [None]
